FAERS Safety Report 4613777-7 (Version None)
Quarter: 2005Q1

REPORT INFORMATION
  Report Type: 
  Country: None (occurrence: None)
  Receive Date: 20050321
  Receipt Date: 20050207
  Transmission Date: 20050727
  Serious: Yes (Life-Threatening)
  Sender: FDA-Public Use
  Company Number: US-SANOFI-SYNTHELABO-A03200500397

PATIENT
  Sex: Male

DRUGS (4)
  1. UROXATRAL [Suspect]
     Indication: URINARY INCONTINENCE
     Route: 048
     Dates: start: 20041228, end: 20041228
  2. PSEUDOEPHEDRINE HCL [Concomitant]
     Dosage: UNK
     Route: 065
  3. NEXIUM [Concomitant]
     Dosage: UNK
     Route: 048
  4. AMBIEN [Concomitant]
     Dosage: UNK
     Route: 048

REACTIONS (4)
  - ANGIONEUROTIC OEDEMA [None]
  - BURNING SENSATION [None]
  - DYSPNOEA [None]
  - RASH [None]
